FAERS Safety Report 15722510 (Version 1)
Quarter: 2018Q4

REPORT INFORMATION
  Report Type: Spontaneous
  Country: US (occurrence: US)
  Receive Date: 20181214
  Receipt Date: 20181214
  Transmission Date: 20190205
  Serious: Yes (Life-Threatening, Other)
  Sender: FDA-Public Use
  Company Number: US-FRESENIUS KABI-FK201812677

PATIENT
  Age: 17 Year
  Sex: Female

DRUGS (1)
  1. ACETYLCYSTEINE (MANUFACTURER UNKNOWN) [Suspect]
     Active Substance: ACETYLCYSTEINE
     Indication: OVERDOSE
     Route: 065

REACTIONS (1)
  - Anaphylactic reaction [Recovered/Resolved]
